FAERS Safety Report 17226100 (Version 1)
Quarter: 2020Q1

REPORT INFORMATION
  Report Type: Report from Study
  Country: CA (occurrence: CA)
  Receive Date: 20200102
  Receipt Date: 20200102
  Transmission Date: 20200409
  Serious: Yes (Hospitalization)
  Sender: FDA-Public Use
  Company Number: CA-BAYER-2019-215004

PATIENT
  Age: 50 Year
  Sex: Female

DRUGS (1)
  1. ADEMPAS [Suspect]
     Active Substance: RIOCIGUAT
     Indication: PULMONARY HYPERTENSION
     Dosage: 1 MG, BID
     Dates: start: 20190921

REACTIONS (3)
  - Inappropriate schedule of product administration [None]
  - Hospitalisation [None]
  - Blood pressure systolic increased [Unknown]

NARRATIVE: CASE EVENT DATE: 2019
